FAERS Safety Report 7314228-4 (Version None)
Quarter: 2011Q1

REPORT INFORMATION
  Report Type: 
  Country: None (occurrence: None)
  Receive Date: 20110225
  Receipt Date: 20100614
  Transmission Date: 20110831
  Serious: No
  Sender: FDA-Public Use
  Company Number: US-MYLANLABS-2010S1010560

PATIENT
  Age: 14 Year
  Sex: Male

DRUGS (2)
  1. AMNESTEEM [Suspect]
     Indication: ACNE
     Route: 048
     Dates: start: 20100501, end: 20100611
  2. ANTI-ACNE PREPARATIONS FOR TOPICAL USE [Concomitant]

REACTIONS (2)
  - JOINT STIFFNESS [None]
  - RASH [None]
